FAERS Safety Report 17827538 (Version 1)
Quarter: 2020Q2

REPORT INFORMATION
  Report Type: Other
  Country: FR (occurrence: FR)
  Receive Date: 20200527
  Receipt Date: 20200527
  Transmission Date: 20200714
  Serious: Yes (Hospitalization)
  Sender: FDA-Public Use
  Company Number: FR-CADILA HEALTHCARE LIMITED-FR-ZYDUS-051238

PATIENT

DRUGS (6)
  1. PIPERACILLINE [PIPERACILLIN] [Suspect]
     Active Substance: PIPERACILLIN
     Indication: VASCULAR DEVICE INFECTION
     Dosage: 4G X3/J DE PIPERACILLINE TAZABACTAM
     Route: 042
     Dates: start: 20200418
  2. FOSCAVIR [Suspect]
     Active Substance: FOSCARNET SODIUM
     Indication: HERPES SIMPLEX
     Dosage: 4 GRAM
     Route: 042
     Dates: start: 20200422, end: 20200426
  3. KIDROLASE [Suspect]
     Active Substance: ASPARAGINASE
     Indication: ACUTE LYMPHOCYTIC LEUKAEMIA
     Dosage: UNK
     Route: 042
     Dates: start: 20200411, end: 20200421
  4. LEVOFLOXACIN. [Suspect]
     Active Substance: LEVOFLOXACIN
     Indication: VASCULAR DEVICE INFECTION
     Dosage: UNK
     Route: 065
     Dates: start: 20200421, end: 20200429
  5. CRESEMBA [Suspect]
     Active Substance: ISAVUCONAZONIUM SULFATE
     Indication: MUCORMYCOSIS
     Dosage: 200 MILLIGRAM
     Route: 048
     Dates: end: 20200429
  6. VANCOMYCINE [VANCOMYCIN] [Suspect]
     Active Substance: VANCOMYCIN
     Indication: VASCULAR DEVICE INFECTION
     Dosage: UNK
     Route: 042
     Dates: start: 20200424, end: 20200427

REACTIONS (4)
  - Gamma-glutamyltransferase increased [Not Recovered/Not Resolved]
  - Cell death [Not Recovered/Not Resolved]
  - Blood bilirubin increased [Recovering/Resolving]
  - Blood alkaline phosphatase increased [Not Recovered/Not Resolved]

NARRATIVE: CASE EVENT DATE: 20200425
